FAERS Safety Report 8145981 (Version 3)
Quarter: 2013Q2

REPORT INFORMATION
  Report Type: Spontaneous
  Country: US (occurrence: US)
  Receive Date: 20110921
  Receipt Date: 20130501
  Transmission Date: 20140414
  Serious: Yes (Hospitalization)
  Sender: FDA-Public Use
  Company Number: US-BRACCO-006763

PATIENT
  Age: 73 Year
  Sex: Female
  Weight: 98 kg

DRUGS (23)
  1. ISOVUE 370 [Suspect]
     Indication: ANGIOGRAM
     Dosage: ADMINISTERED FROM15:33 TO 16:46
     Route: 013
     Dates: start: 20110804, end: 20110804
  2. ALL OTHER THERAPEUTIC PRODUCTS [Suspect]
     Indication: PERCUTANEOUS CORONARY INTERVENTION
     Dosage: 7.4 ML BOLUS
     Route: 040
     Dates: start: 20110804, end: 20110804
  3. KLOR-CON [Concomitant]
     Dates: start: 20090911
  4. VITAMIN B12 [Concomitant]
     Dates: start: 20060109
  5. CLOPIDOGREL [Concomitant]
     Dosage: POST PROCEDURE
     Dates: start: 20110804
  6. CLOPIDOGREL [Concomitant]
     Dosage: AT DISCHARGE
  7. CLOPIDOGREL [Concomitant]
     Dates: start: 20110805, end: 20110807
  8. ASPIRIN [Concomitant]
     Dosage: PRIOR TO RANDOMIZATION
     Dates: start: 20110804
  9. ASPIRIN [Concomitant]
     Dosage: AT DISCHARGE
  10. ASPIRIN [Concomitant]
     Dosage: POST PROCEDURE
     Dates: start: 20110805, end: 20110807
  11. ROSUVASTATIN [Concomitant]
     Dates: start: 20070817
  12. CELEBREX [Concomitant]
     Dates: start: 20070817
  13. SIMVASTATIN [Concomitant]
     Dates: start: 20101019
  14. FOSAMAX [Concomitant]
     Dates: start: 20070817
  15. FUROSEMIDE [Concomitant]
     Dates: start: 20080911
  16. GLYBURIDE [Concomitant]
     Dates: start: 20070817
  17. METFORMIN [Concomitant]
     Dates: start: 20070817
  18. HEPARIN [Concomitant]
     Dosage: PRE AND DURING THE PROCEDURE
     Dates: start: 20110804, end: 20110804
  19. HEPARIN [Concomitant]
     Dosage: POST PROCEDURE
     Dates: start: 20110804, end: 20110806
  20. DIOVAN [Concomitant]
     Dates: start: 20110119
  21. ALL OTHER THERAPEUTIC PRODUCTS [Suspect]
     Indication: PERCUTANEOUS CORONARY INTERVENTION
     Dosage: 58.2 ML /HOUR
     Route: 042
     Dates: start: 20110804, end: 20110804
  22. ALL OTHER THERAPEUTIC PRODUCTS [Suspect]
     Indication: PERCUTANEOUS CORONARY INTERVENTION
     Dosage: 4 CAPSULES LOADING DOSE
     Route: 048
     Dates: start: 20110804, end: 20110804
  23. ALL OTHER THERAPEUTIC PRODUCTS [Suspect]
     Indication: PERCUTANEOUS CORONARY INTERVENTION
     Dosage: 4 POST INFUSION CAPSULES
     Route: 048
     Dates: start: 20110804, end: 20110804

REACTIONS (1)
  - Renal failure acute [Recovered/Resolved]
